FAERS Safety Report 4826792-5 (Version None)
Quarter: 2005Q4

REPORT INFORMATION
  Report Type: 
  Country: None (occurrence: None)
  Receive Date: 20051014
  Receipt Date: 20050621
  Transmission Date: 20060501
  Serious: No
  Sender: FDA-Public Use
  Company Number: 2005SP001535

PATIENT
  Age: 49 Year
  Sex: Female
  Weight: 58.9676 kg

DRUGS (4)
  1. LUNESTA [Suspect]
     Indication: INSOMNIA
     Dosage: 3 MG;HS;ORAL
     Route: 048
     Dates: start: 20050618, end: 20050619
  2. THYROID THERAPY [Concomitant]
  3. HORMONE PILL [Concomitant]
  4. PEPTO-BISMOL [Concomitant]

REACTIONS (10)
  - CONFUSIONAL STATE [None]
  - DIZZINESS [None]
  - GLOSSODYNIA [None]
  - HEADACHE [None]
  - HYPERSENSITIVITY [None]
  - NAUSEA [None]
  - PARADOXICAL DRUG REACTION [None]
  - SWOLLEN TONGUE [None]
  - TONGUE BLACK HAIRY [None]
  - TONGUE DISORDER [None]
